FAERS Safety Report 6633064-5 (Version None)
Quarter: 2010Q1

REPORT INFORMATION
  Report Type: 
  Country: None (occurrence: None)
  Receive Date: 20100312
  Receipt Date: 20100301
  Transmission Date: 20100710
  Serious: Yes (Hospitalization, Other)
  Sender: FDA-Public Use
  Company Number: PHHY2010US02943

PATIENT
  Sex: Female
  Weight: 59 kg

DRUGS (2)
  1. TASIGNA [Suspect]
     Indication: MALIGNANT SOFT TISSUE NEOPLASM
     Dosage: 400 MG, BID
     Route: 048
  2. TASIGNA [Suspect]
     Dosage: 200 MG, BID
     Route: 048

REACTIONS (7)
  - HAEMATURIA [None]
  - NEOPLASM MALIGNANT [None]
  - NEPHROURETERECTOMY [None]
  - POST PROCEDURAL COMPLICATION [None]
  - RENAL TUMOUR EXCISION [None]
  - RESPIRATORY FAILURE [None]
  - TRANSITIONAL CELL CARCINOMA [None]
